FAERS Safety Report 10442372 (Version 2)
Quarter: 2014Q3

REPORT INFORMATION
  Report Type: Spontaneous
  Country: US (occurrence: None)
  Receive Date: 20140908
  Receipt Date: 20140911
  Transmission Date: 20150326
  Serious: Yes (Other)
  Sender: FDA-Public Use
  Company Number: ADR-2014-01604

PATIENT
  Age: 21 Year
  Sex: Male

DRUGS (2)
  1. BACLOFEN INTRATHECAL [Suspect]
     Active Substance: BACLOFEN
     Indication: MUSCLE SPASTICITY
     Dosage: UNK
  2. BACLOFEN (ORAL) [Suspect]
     Active Substance: BACLOFEN
     Dosage: UNK

REACTIONS (6)
  - Anxiety [None]
  - Drug withdrawal syndrome [None]
  - Priapism [None]
  - Medical device complication [None]
  - Muscle spasms [None]
  - Condition aggravated [None]
